FAERS Safety Report 8510447-X (Version None)
Quarter: 2012Q3

REPORT INFORMATION
  Report Type: 
  Country: None (occurrence: None)
  Receive Date: 20120715
  Receipt Date: 20120705
  Transmission Date: 20120928
  Serious: Yes (Other)
  Sender: FDA-Public Use
  Company Number: FR-SANOFI-AVENTIS-2011SA058059

PATIENT
  Age: 46 Year
  Sex: Female

DRUGS (3)
  1. TAXOTERE [Suspect]
     Route: 042
     Dates: start: 20110722, end: 20110722
  2. TAXOTERE [Suspect]
     Indication: BREAST CANCER
     Route: 042
     Dates: start: 20110624, end: 20110624
  3. AVASTIN [Suspect]
     Dates: start: 20110617

REACTIONS (2)
  - MOUTH ULCERATION [None]
  - PERIODONTAL DISEASE [None]
